FAERS Safety Report 6740457-4 (Version None)
Quarter: 2010Q2

REPORT INFORMATION
  Report Type: 
  Country: None (occurrence: None)
  Receive Date: 20100525
  Receipt Date: 20100413
  Transmission Date: 20101027
  Serious: No
  Sender: FDA-Public Use
  Company Number: US-ALLERGAN-1004830US

PATIENT
  Age: 28 Year
  Sex: Female

DRUGS (3)
  1. TAZORAC [Suspect]
     Indication: ACNE
     Dosage: UNK
     Route: 061
     Dates: start: 20100406, end: 20100409
  2. ACZONE [Suspect]
     Indication: ACNE
     Dosage: UNK
     Route: 061
     Dates: start: 20100406, end: 20100409
  3. TRIAZ [Suspect]
     Indication: ACNE
     Dosage: UNK
     Route: 061
     Dates: start: 20100406, end: 20100409

REACTIONS (4)
  - BURNING SENSATION [None]
  - ERYTHEMA [None]
  - FEELING HOT [None]
  - SKIN IRRITATION [None]
